FAERS Safety Report 14987860 (Version 11)
Quarter: 2018Q4

REPORT INFORMATION
  Report Type: Report from Study
  Country: US (occurrence: US)
  Receive Date: 20180608
  Receipt Date: 20181213
  Transmission Date: 20190204
  Serious: Yes (Hospitalization, Other)
  Sender: FDA-Public Use
  Company Number: US-B.I. PHARMACEUTICALS,INC./RIDGEFIELD-2018-BI-029446

PATIENT
  Age: 69 Year
  Sex: Female
  Weight: 170 kg

DRUGS (21)
  1. VENTOLIN HFA [Concomitant]
     Active Substance: ALBUTEROL SULFATE
     Indication: RESTRICTIVE PULMONARY DISEASE
  2. ASPIRIN. [Concomitant]
     Active Substance: ASPIRIN
     Indication: PROPHYLAXIS
     Route: 048
     Dates: start: 2012
  3. CENTRUM SILVER +50 [Concomitant]
     Indication: PROPHYLAXIS
     Route: 048
     Dates: start: 2012
  4. EDARBYCLOR [Concomitant]
     Active Substance: AZILSARTAN KAMEDOXOMIL\CHLORTHALIDONE
     Indication: HYPERTENSION
     Route: 048
     Dates: start: 2014
  5. BIBF 1120 [Suspect]
     Active Substance: NINTEDANIB
     Indication: INTERSTITIAL LUNG DISEASE
  6. FLOVENT HFA [Concomitant]
     Active Substance: FLUTICASONE PROPIONATE
     Indication: INTERSTITIAL LUNG DISEASE
     Route: 055
     Dates: start: 2014
  7. PROVENTIL [Concomitant]
     Active Substance: ALBUTEROL
     Indication: INTERSTITIAL LUNG DISEASE
     Dosage: TOTAL DAILY DOSE: 0.083%  25MG/3ML
     Route: 055
     Dates: start: 20170511
  8. ATORVASTATIN [Concomitant]
     Active Substance: ATORVASTATIN
     Indication: BLOOD CHOLESTEROL INCREASED
     Route: 048
     Dates: start: 2004
  9. VENTOLIN HFA [Concomitant]
     Active Substance: ALBUTEROL SULFATE
     Indication: INTERSTITIAL LUNG DISEASE
     Route: 055
     Dates: start: 201704
  10. VITAMIN D3 [Concomitant]
     Active Substance: CHOLECALCIFEROL
     Indication: PROPHYLAXIS
     Route: 048
     Dates: start: 2012
  11. NORVASC [Concomitant]
     Active Substance: AMLODIPINE BESYLATE
     Indication: HYPERTENSION
     Route: 048
     Dates: start: 2012
  12. PRILOSEC [Concomitant]
     Active Substance: OMEPRAZOLE MAGNESIUM
     Indication: GASTROOESOPHAGEAL REFLUX DISEASE
     Route: 048
     Dates: start: 2016
  13. BIBF 1120 [Suspect]
     Active Substance: NINTEDANIB
     Indication: SYSTEMIC SCLERODERMA
     Route: 048
     Dates: start: 20171002, end: 20180604
  14. FERROUS SULFATE. [Concomitant]
     Active Substance: FERROUS SULFATE
     Indication: PROPHYLAXIS
     Route: 048
     Dates: start: 2015
  15. METFORMIN W/SAXAGLIPTIN [Concomitant]
     Indication: HYPERGLYCAEMIA
     Dosage: TOTAL DAILY DOSE: 2.5-1000MG BID
     Route: 048
     Dates: start: 2012
  16. METFORMIN W/SAXAGLIPTIN [Concomitant]
     Dosage: TOTAL DAILY DOSE: 2.5-1000MG
     Route: 048
  17. BACLOFEN. [Concomitant]
     Active Substance: BACLOFEN
     Indication: GASTROOESOPHAGEAL REFLUX DISEASE
     Route: 048
     Dates: start: 2016
  18. CELLCEPT [Concomitant]
     Active Substance: MYCOPHENOLATE MOFETIL\MYCOPHENOLATE MOFETIL HYDROCHLORIDE
     Indication: SCLERODERMA
     Route: 048
  19. BACTRIM DS [Concomitant]
     Active Substance: SULFAMETHOXAZOLE\TRIMETHOPRIM
     Indication: ANTIBIOTIC PROPHYLAXIS
     Dosage: TOTAL DAILY DOSE: 800-160MG
     Route: 048
     Dates: start: 2016
  20. LIPITOR [Concomitant]
     Active Substance: ATORVASTATIN CALCIUM
     Indication: BLOOD CHOLESTEROL INCREASED
     Route: 048
     Dates: start: 2004
  21. SPIRONOLACTONE. [Concomitant]
     Active Substance: SPIRONOLACTONE
     Indication: OEDEMA
     Route: 048
     Dates: start: 20171101

REACTIONS (7)
  - Subarachnoid haemorrhage [Recovered/Resolved]
  - Hypovolaemia [Recovered/Resolved]
  - Acute kidney injury [Recovered/Resolved]
  - Pulmonary arterial hypertension [Not Recovered/Not Resolved]
  - Syncope [Recovered/Resolved]
  - Hypotension [Recovered/Resolved]
  - Diarrhoea [Recovered/Resolved]

NARRATIVE: CASE EVENT DATE: 20171012
